FAERS Safety Report 6988111-8 (Version None)
Quarter: 2010Q3

REPORT INFORMATION
  Report Type: 
  Country: None (occurrence: None)
  Receive Date: 20100916
  Receipt Date: 20100907
  Transmission Date: 20110219
  Serious: Yes (Hospitalization)
  Sender: FDA-Public Use
  Company Number: B0673388A

PATIENT
  Sex: Male

DRUGS (14)
  1. CELSENTRI [Suspect]
     Indication: HIV INFECTION
     Dosage: 2UNIT PER DAY
     Route: 048
     Dates: start: 20100107, end: 20100130
  2. METHOTREXATE [Suspect]
     Dosage: 3000MGM2 CYCLIC
     Route: 042
     Dates: start: 20100107, end: 20100126
  3. TRUVADA [Suspect]
     Indication: HIV INFECTION
     Dosage: 1TAB PER DAY
     Route: 048
     Dates: start: 20090401, end: 20100130
  4. ISENTRESS [Suspect]
     Indication: HIV INFECTION
     Dosage: 800MG PER DAY
     Route: 048
     Dates: start: 20100107, end: 20100130
  5. DOXORUBICIN HCL [Suspect]
     Dosage: 60MGM2 CYCLIC
     Route: 042
     Dates: start: 20100108, end: 20100127
  6. VINCRISTINE SULFATE [Suspect]
     Dosage: 1.4MGM2 CYCLIC
     Route: 042
     Dates: start: 20091231, end: 20100126
  7. ENDOXAN [Suspect]
     Route: 042
     Dates: start: 20091231, end: 20100129
  8. VALACYCLOVIR HYDROCHLORIDE [Concomitant]
     Indication: PROPHYLAXIS
     Dosage: 500MG PER DAY
     Route: 048
     Dates: start: 20090401
  9. KALETRA [Concomitant]
     Indication: HIV INFECTION
     Route: 048
     Dates: start: 20090401, end: 20100107
  10. CYTARABINE [Concomitant]
     Indication: PROPHYLAXIS
     Route: 037
     Dates: start: 20091231, end: 20100131
  11. HYDROCORTISONE [Concomitant]
     Indication: PROPHYLAXIS
     Route: 037
     Dates: start: 20091231, end: 20100131
  12. METHYLPREDNISOLONE [Concomitant]
     Route: 042
     Dates: start: 20091231, end: 20100130
  13. RASBURICASE [Concomitant]
     Dates: start: 20091231, end: 20100101
  14. METHOTREXATE [Concomitant]
     Indication: PROPHYLAXIS
     Route: 037
     Dates: start: 20091231, end: 20100131

REACTIONS (5)
  - BLOOD CREATININE INCREASED [None]
  - HAEMATURIA [None]
  - PROTEINURIA [None]
  - RENAL FAILURE ACUTE [None]
  - RENAL TUBULAR NECROSIS [None]
